FAERS Safety Report 10032699 (Version 2)
Quarter: 2014Q2

REPORT INFORMATION
  Report Type: Spontaneous
  Country: LT (occurrence: LT)
  Receive Date: 20140324
  Receipt Date: 20140414
  Transmission Date: 20141212
  Serious: Yes (Other)
  Sender: FDA-Public Use
  Company Number: LT-GLAXOSMITHKLINE-B0978136A

PATIENT
  Age: 59 Year
  Sex: Male

DRUGS (3)
  1. COMBODART [Suspect]
     Indication: BENIGN PROSTATIC HYPERPLASIA
     Route: 065
     Dates: start: 20101014
  2. TAMSULOSIN [Concomitant]
  3. DOXAZOSIN [Concomitant]

REACTIONS (2)
  - Urinary retention [Recovered/Resolved]
  - Dysuria [Recovering/Resolving]
